FAERS Safety Report 19092386 (Version 2)
Quarter: 2021Q2

REPORT INFORMATION
  Report Type: Report from Study
  Country: IN (occurrence: IN)
  Receive Date: 20210405
  Receipt Date: 20210414
  Transmission Date: 20210717
  Serious: Yes (Death, Hospitalization, Other)
  Sender: FDA-Public Use
  Company Number: PHHY2018IN196142

PATIENT
  Age: 76 Year
  Sex: Male

DRUGS (5)
  1. TASIGNA [Suspect]
     Active Substance: NILOTINIB
     Dosage: 400 MG, BID
     Route: 048
     Dates: start: 20190213
  2. TASIGNA [Suspect]
     Active Substance: NILOTINIB
     Dosage: UNK (400MG IN THE MORNING AND 200MG IN EVEMIMG)
     Route: 065
     Dates: start: 201911
  3. TASIGNA [Suspect]
     Active Substance: NILOTINIB
     Dosage: 400 MG, BID
     Route: 065
     Dates: start: 20181114, end: 20210403
  4. TASIGNA [Suspect]
     Active Substance: NILOTINIB
     Indication: CHRONIC MYELOID LEUKAEMIA
     Dosage: 400 MG, BID
     Route: 048
     Dates: start: 20181114, end: 20181205
  5. TASIGNA [Suspect]
     Active Substance: NILOTINIB
     Dosage: 400 MG, BID
     Route: 048
     Dates: start: 20181213, end: 20190202

REACTIONS (7)
  - Malignant neoplasm progression [Fatal]
  - Chronic myeloid leukaemia [Fatal]
  - Haemoglobin decreased [Recovered/Resolved]
  - Haemoglobin decreased [Recovering/Resolving]
  - Asthenia [Not Recovered/Not Resolved]
  - SARS-CoV-2 test positive [Not Recovered/Not Resolved]
  - Arteriosclerosis [Unknown]

NARRATIVE: CASE EVENT DATE: 20181205
